FAERS Safety Report 24577675 (Version 1)
Quarter: 2024Q4

REPORT INFORMATION
  Report Type: Spontaneous
  Country: US (occurrence: None)
  Receive Date: 20241104
  Receipt Date: 20241104
  Transmission Date: 20250115
  Serious: Yes (Hospitalization)
  Sender: Public
  Company Number: None

PATIENT
  Age: 25 Year
  Sex: Male
  Weight: 125 kg

DRUGS (9)
  1. BRIGATINIB [Suspect]
     Active Substance: BRIGATINIB
     Indication: Neurofibromatosis
     Dosage: FREQUENCY : DAILY;?
     Route: 048
     Dates: start: 20220310
  2. ZOLOFT [Suspect]
     Active Substance: SERTRALINE HYDROCHLORIDE
  3. NORVASC [Concomitant]
     Active Substance: AMLODIPINE BESYLATE
  4. COREG [Concomitant]
     Active Substance: CARVEDILOL
  5. COZAAR [Concomitant]
     Active Substance: LOSARTAN POTASSIUM
  6. VITAMINS [Concomitant]
     Active Substance: VITAMINS
  7. SYSTANE COMPLETE [Concomitant]
     Active Substance: PROPYLENE GLYCOL
  8. XANAX [Concomitant]
     Active Substance: ALPRAZOLAM
  9. SODIUM CHLORIDE [Concomitant]
     Active Substance: SODIUM CHLORIDE

REACTIONS (8)
  - Aggression [None]
  - Psychiatric symptom [None]
  - Suicidal ideation [None]
  - Impulsive behaviour [None]
  - Adjustment disorder [None]
  - Product use issue [None]
  - Aggression [None]
  - Major depression [None]

NARRATIVE: CASE EVENT DATE: 20241102
